FAERS Safety Report 20694850 (Version 1)
Quarter: 2022Q2

REPORT INFORMATION
  Report Type: Spontaneous
  Country: IT (occurrence: IT)
  Receive Date: 20220411
  Receipt Date: 20220411
  Transmission Date: 20220720
  Serious: Yes (Other)
  Sender: FDA-Public Use
  Company Number: IT-ROCHE-2959291

PATIENT
  Age: 69 Year
  Sex: Female

DRUGS (10)
  1. METHOTREXATE [Suspect]
     Active Substance: METHOTREXATE
     Indication: B-cell small lymphocytic lymphoma
     Dosage: Q3W (6 CYCLES),RECEIVED SIX CYCLES
     Route: 065
     Dates: start: 201508, end: 201602
  2. METHOTREXATE [Suspect]
     Active Substance: METHOTREXATE
     Indication: Bing-Neel syndrome
  3. THIOTEPA [Suspect]
     Active Substance: THIOTEPA
     Indication: B-cell small lymphocytic lymphoma
     Dosage: Q3W (6 CYCLES)
     Route: 065
     Dates: start: 201508, end: 201602
  4. THIOTEPA [Suspect]
     Active Substance: THIOTEPA
     Indication: Bing-Neel syndrome
  5. CYTARABINE [Suspect]
     Active Substance: CYTARABINE
     Indication: B-cell small lymphocytic lymphoma
     Dosage: Q3W (6 CYCLES)
     Route: 065
     Dates: start: 201508, end: 201602
  6. CYTARABINE [Suspect]
     Active Substance: CYTARABINE
     Indication: Bing-Neel syndrome
  7. RITUXIMAB [Suspect]
     Active Substance: RITUXIMAB
     Indication: B-cell small lymphocytic lymphoma
     Dosage: Q3W (6 CYCLES)
     Route: 065
     Dates: start: 20150120, end: 20160120
  8. RITUXIMAB [Suspect]
     Active Substance: RITUXIMAB
     Indication: Bing-Neel syndrome
     Dosage: Q3W,RECEIVED SIX CYCLES
     Route: 065
     Dates: start: 201508, end: 201602
  9. IBRUTINIB [Suspect]
     Active Substance: IBRUTINIB
     Indication: Bing-Neel syndrome
     Dosage: 420 MILLIGRAM, QD
     Route: 048
     Dates: start: 201808
  10. LEUCOVORIN [Concomitant]
     Active Substance: LEUCOVORIN
     Indication: Acute kidney injury
     Dosage: UNK
     Route: 065

REACTIONS (2)
  - Febrile neutropenia [Recovering/Resolving]
  - Off label use [Unknown]

NARRATIVE: CASE EVENT DATE: 20150101
